FAERS Safety Report 10061581 (Version 1)
Quarter: 2014Q2

REPORT INFORMATION
  Report Type: Spontaneous
  Country: US (occurrence: None)
  Receive Date: 20140403
  Receipt Date: 20140403
  Transmission Date: 20141212
  Serious: Yes (Disabling, Other)
  Sender: FDA-Public Use
  Company Number: 2264247

PATIENT
  Sex: Male

DRUGS (1)
  1. HEPARIN [Suspect]
     Indication: ANTICOAGULANT THERAPY
     Dates: start: 20120212

REACTIONS (18)
  - Dry gangrene [None]
  - Leg amputation [None]
  - Aortic valve incompetence [None]
  - Leg amputation [None]
  - Hand amputation [None]
  - Finger amputation [None]
  - Finger amputation [None]
  - Heparin-induced thrombocytopenia [None]
  - Cardiogenic shock [None]
  - Post procedural complication [None]
  - Heparin-induced thrombocytopenia [None]
  - Haematoma [None]
  - Cardiac tamponade [None]
  - Aortic dissection [None]
  - Cyanosis [None]
  - Condition aggravated [None]
  - Cardiac disorder [None]
  - Disease progression [None]
